FAERS Safety Report 8232770-9 (Version None)
Quarter: 2012Q1

REPORT INFORMATION
  Report Type: 
  Country: None (occurrence: None)
  Receive Date: 20120323
  Receipt Date: 20120321
  Transmission Date: 20120608
  Serious: Yes (Other)
  Sender: FDA-Public Use
  Company Number: ES-MERCK-1203ESP00046

PATIENT
  Age: 11 Year
  Sex: Female

DRUGS (2)
  1. SINGULAIR [Suspect]
     Route: 048
     Dates: start: 20101001, end: 20101001
  2. SINGULAIR [Suspect]
     Indication: ASTHMA
     Route: 048
     Dates: start: 20101001, end: 20101001

REACTIONS (3)
  - INSOMNIA [None]
  - HALLUCINATION, VISUAL [None]
  - NERVOUSNESS [None]
